FAERS Safety Report 5688787-1 (Version None)
Quarter: 2008Q1

REPORT INFORMATION
  Report Type: 
  Country: None (occurrence: None)
  Receive Date: 20080331
  Receipt Date: 20080318
  Transmission Date: 20080703
  Serious: Yes (Other)
  Sender: FDA-Public Use
  Company Number: SA-ROCHE-554038

PATIENT
  Age: 26 Year
  Sex: Male
  Weight: 104.5 kg

DRUGS (3)
  1. XENICAL [Suspect]
     Indication: OBESITY
     Route: 048
     Dates: start: 20071103, end: 20080311
  2. XENICAL [Suspect]
     Route: 048
  3. GINSENG [Concomitant]
     Dates: start: 20071103

REACTIONS (3)
  - CHROMATURIA [None]
  - DRY MOUTH [None]
  - RENAL PAIN [None]
